FAERS Safety Report 7817568-5 (Version None)
Quarter: 2011Q4

REPORT INFORMATION
  Report Type: 
  Country: None (occurrence: None)
  Receive Date: 20111017
  Receipt Date: 20111005
  Transmission Date: 20120403
  Serious: Yes (Other)
  Sender: FDA-Public Use
  Company Number: PHHY2011CH82454

PATIENT
  Sex: Female

DRUGS (5)
  1. CLOZAPINE [Suspect]
  2. LORAZEPAM [Concomitant]
  3. BENZODIAZEPINES [Concomitant]
  4. CLOZAPINE [Suspect]
  5. CLOZAPINE [Suspect]
     Dosage: 550 MG, DAILY

REACTIONS (7)
  - AKINESIA [None]
  - SOMNOLENCE [None]
  - ANTIPSYCHOTIC DRUG LEVEL ABOVE THERAPEUTIC [None]
  - FALL [None]
  - FEAR [None]
  - TENSION [None]
  - OVERDOSE [None]
